FAERS Safety Report 9639327 (Version 1)
Quarter: 2013Q4

REPORT INFORMATION
  Report Type: Report from Study
  Country: FR (occurrence: FR)
  Receive Date: 20131022
  Receipt Date: 20131022
  Transmission Date: 20140711
  Serious: Yes (Hospitalization)
  Sender: FDA-Public Use
  Company Number: FR-ABBVIE-13P-056-1157590-00

PATIENT
  Age: 58 Year
  Sex: Male
  Weight: 90 kg

DRUGS (3)
  1. HUMIRA [Suspect]
     Indication: RHEUMATOID ARTHRITIS
     Route: 058
     Dates: start: 20130813
  2. ARAVA [Concomitant]
     Indication: RHEUMATOID ARTHRITIS
     Dates: start: 20121205
  3. KETOPROFENE [Concomitant]
     Indication: SCIATICA
     Dates: start: 20130701

REACTIONS (1)
  - Intervertebral disc protrusion [Recovered/Resolved]
